FAERS Safety Report 7089853-9 (Version None)
Quarter: 2010Q4

REPORT INFORMATION
  Report Type: 
  Country: None (occurrence: None)
  Receive Date: 20101108
  Receipt Date: 20101019
  Transmission Date: 20110411
  Serious: Yes (Other)
  Sender: FDA-Public Use
  Company Number: US-AMGEN-USASP2010000921

PATIENT

DRUGS (1)
  1. ENBREL [Suspect]
     Indication: PSORIASIS
     Dates: start: 20100901

REACTIONS (6)
  - ASTHENIA [None]
  - COUGH [None]
  - HOT FLUSH [None]
  - HYPERHIDROSIS [None]
  - PANIC ATTACK [None]
  - WEIGHT DECREASED [None]
